FAERS Safety Report 18681702 (Version 1)
Quarter: 2020Q4

REPORT INFORMATION
  Report Type: Spontaneous
  Country: MY (occurrence: MY)
  Receive Date: 20201229
  Receipt Date: 20201229
  Transmission Date: 20210114
  Serious: Yes (Hospitalization, Other)
  Sender: FDA-Public Use
  Company Number: NVSC2020MY333299

PATIENT
  Age: 70 Year
  Sex: Male

DRUGS (17)
  1. ENTRESTO [Suspect]
     Active Substance: SACUBITRIL\VALSARTAN
     Indication: PRODUCT USED FOR UNKNOWN INDICATION
     Dosage: 25 MG, BID
     Route: 065
  2. LISPRO INSULIN [Concomitant]
     Active Substance: INSULIN LISPRO
     Indication: PRODUCT USED FOR UNKNOWN INDICATION
     Dosage: 14 UL,TDS
     Route: 058
  3. DIOVAN [Suspect]
     Active Substance: VALSARTAN
     Indication: PROPHYLAXIS
     Dosage: 40 MG, BID
     Route: 065
  4. FINASTERIDE. [Concomitant]
     Active Substance: FINASTERIDE
     Indication: PRODUCT USED FOR UNKNOWN INDICATION
     Dosage: 5 MG, ONCE/SINGLE
     Route: 065
  5. LANTUS [Concomitant]
     Active Substance: INSULIN GLARGINE
     Indication: PRODUCT USED FOR UNKNOWN INDICATION
     Dosage: 24 UL, ONCE/SINGLE
     Route: 058
  6. LANTUS [Concomitant]
     Active Substance: INSULIN GLARGINE
     Dosage: 12 UL, ONCE/SINGLE
     Route: 065
  7. LASIX [Concomitant]
     Active Substance: FUROSEMIDE
     Dosage: 7.5 MG/HR
     Route: 065
  8. XIGDUO XR [Concomitant]
     Active Substance: DAPAGLIFLOZIN PROPANEDIOL\METFORMIN HYDROCHLORIDE
     Indication: POLYURIA
     Dosage: UNK, QD
     Route: 065
  9. ATORVASTATIN [Suspect]
     Active Substance: ATORVASTATIN
     Indication: PRODUCT USED FOR UNKNOWN INDICATION
     Dosage: 20 MG, ONCE/SINGLE
     Route: 065
  10. LISPRO INSULIN [Concomitant]
     Active Substance: INSULIN LISPRO
     Dosage: 12 UL DOSE REDUCED
     Route: 058
  11. TERAZOSIN [Concomitant]
     Active Substance: TERAZOSIN HYDROCHLORIDE
     Indication: PRODUCT USED FOR UNKNOWN INDICATION
     Dosage: 5 MG
     Route: 065
  12. LASIX [Concomitant]
     Active Substance: FUROSEMIDE
     Dosage: 10 MG/HR (CILT)
     Route: 065
  13. PANTOPRAZOLE [Suspect]
     Active Substance: PANTOPRAZOLE
     Indication: PRODUCT USED FOR UNKNOWN INDICATION
     Dosage: 40 MG, QD
     Route: 065
  14. DIOVAN [Suspect]
     Active Substance: VALSARTAN
     Indication: SODIUM RETENTION
  15. SOTALOL. [Concomitant]
     Active Substance: SOTALOL
     Indication: PRODUCT USED FOR UNKNOWN INDICATION
     Dosage: 40 MG, BID
     Route: 065
  16. LASIX [Concomitant]
     Active Substance: FUROSEMIDE
     Indication: PRODUCT USED FOR UNKNOWN INDICATION
     Dosage: 40 MG, BID
     Route: 065
  17. LASIX [Concomitant]
     Active Substance: FUROSEMIDE
     Dosage: 60 MG, TDS
     Route: 065

REACTIONS (29)
  - Skin disorder [Unknown]
  - Orthopnoea [Unknown]
  - Underdose [Unknown]
  - Mitral valve stenosis [Unknown]
  - Discharge [Unknown]
  - Hypotension [Unknown]
  - Ventricular remodelling [Unknown]
  - Atrial fibrillation [Unknown]
  - Dyspnoea paroxysmal nocturnal [Unknown]
  - Product use in unapproved indication [Unknown]
  - Oedema [Unknown]
  - Left ventricular dilatation [Unknown]
  - Aortic valve thickening [Unknown]
  - Pneumonia [Unknown]
  - Tricuspid valve incompetence [Unknown]
  - Obesity [Unknown]
  - Drug ineffective [Unknown]
  - Wrong technique in product usage process [Unknown]
  - Left ventricular dysfunction [Unknown]
  - Fluid overload [Unknown]
  - Pulmonary vascular disorder [Unknown]
  - Gait disturbance [Unknown]
  - Dizziness [Unknown]
  - Cardiac disorder [Unknown]
  - Peripheral swelling [Unknown]
  - Product prescribing error [Unknown]
  - Pericardial effusion [Unknown]
  - Cardiac failure [Unknown]
  - Off label use [Unknown]

NARRATIVE: CASE EVENT DATE: 202006
